FAERS Safety Report 24009505 (Version 1)
Quarter: 2024Q2

REPORT INFORMATION
  Report Type: Spontaneous
  Country: US (occurrence: US)
  Receive Date: 20240625
  Receipt Date: 20240625
  Transmission Date: 20240716
  Serious: Yes (Hospitalization)
  Sender: FDA-Public Use
  Company Number: US-BRISTOL-MYERS SQUIBB COMPANY-2024-098411

PATIENT
  Age: 48 Year
  Sex: Male

DRUGS (1)
  1. ABRAXANE [Suspect]
     Active Substance: PACLITAXEL
     Indication: Malignant neoplasm of ampulla of Vater
     Dosage: FREQUENCY : DAYS 1, 8, 15 EVERY 4 WEEKS
     Route: 042

REACTIONS (2)
  - Post procedural complication [Unknown]
  - Off label use [Unknown]
